FAERS Safety Report 8275970-4 (Version None)
Quarter: 2012Q2

REPORT INFORMATION
  Report Type: 
  Country: None (occurrence: None)
  Receive Date: 20120412
  Receipt Date: 20120409
  Transmission Date: 20120825
  Serious: No
  Sender: FDA-Public Use
  Company Number: US-PFIZER INC-2012089468

PATIENT
  Age: 75 Year
  Sex: Female
  Weight: 99.32 kg

DRUGS (1)
  1. DETROL LA [Suspect]
     Indication: POLLAKIURIA
     Dosage: 4 MG, DAILY, AT NIGHT
     Route: 048
     Dates: start: 20120401

REACTIONS (1)
  - DRUG INEFFECTIVE [None]
